FAERS Safety Report 25597239 (Version 1)
Quarter: 2025Q3

REPORT INFORMATION
  Report Type: Spontaneous
  Country: BR (occurrence: BR)
  Receive Date: 20250723
  Receipt Date: 20250723
  Transmission Date: 20251020
  Serious: Yes (Hospitalization)
  Sender: BIOGEN
  Company Number: BR-BIOGEN-2025BI01317885

PATIENT
  Age: 28 Year
  Sex: Female
  Weight: 84 kg

DRUGS (4)
  1. AVONEX [Suspect]
     Active Substance: INTERFERON BETA-1A
     Indication: Multiple sclerosis
     Route: 050
     Dates: end: 2016
  2. AVONEX [Suspect]
     Active Substance: INTERFERON BETA-1A
     Route: 050
     Dates: end: 202503
  3. AVONEX [Suspect]
     Active Substance: INTERFERON BETA-1A
  4. AVONEX [Suspect]
     Active Substance: INTERFERON BETA-1A

REACTIONS (3)
  - Hypoaesthesia [Recovered/Resolved]
  - Sensory disturbance [Recovered/Resolved]
  - Loss of proprioception [Recovered/Resolved]

NARRATIVE: CASE EVENT DATE: 20250101
